FAERS Safety Report 9659614 (Version 1)
Quarter: 2013Q4

REPORT INFORMATION
  Report Type: Spontaneous
  Country: US (occurrence: US)
  Receive Date: 20131031
  Receipt Date: 20131031
  Transmission Date: 20140711
  Serious: No
  Sender: FDA-Public Use
  Company Number: US-TEVA-440976USA

PATIENT
  Sex: Female

DRUGS (2)
  1. PROAIR HFA [Suspect]
     Dates: start: 20131025
  2. UNKNOWN [Concomitant]
     Indication: DIABETES MELLITUS

REACTIONS (1)
  - Cough [Unknown]
